FAERS Safety Report 13262708 (Version 8)
Quarter: 2021Q1

REPORT INFORMATION
  Report Type: Spontaneous
  Country: US (occurrence: US)
  Receive Date: 20170223
  Receipt Date: 20210113
  Transmission Date: 20210419
  Serious: Yes (Hospitalization, Disabling, Other)
  Sender: FDA-Public Use
  Company Number: US-BAUSCH-BL-2017-004532

PATIENT
  Age: 63 Year
  Sex: Female
  Weight: 68.1 kg

DRUGS (19)
  1. XIFAXAN [Suspect]
     Active Substance: RIFAXIMIN
     Indication: HEPATIC ENCEPHALOPATHY
     Route: 048
     Dates: start: 2010, end: 2018
  2. XIFAXAN [Suspect]
     Active Substance: RIFAXIMIN
     Route: 048
     Dates: start: 201811
  3. XIFAXAN [Suspect]
     Active Substance: RIFAXIMIN
     Dosage: STARTED 5 YEARS AGO
     Route: 048
  4. LACTULOSE. [Suspect]
     Active Substance: LACTULOSE
     Indication: ENCEPHALOPATHY
     Route: 048
  5. NOVOLIN R [Concomitant]
     Active Substance: INSULIN HUMAN
     Indication: PRODUCT USED FOR UNKNOWN INDICATION
     Dosage: 100 UNIT/ML
     Route: 058
  6. TRESIBA [Concomitant]
     Active Substance: INSULIN DEGLUDEC
     Indication: PRODUCT USED FOR UNKNOWN INDICATION
     Dosage: 100 UNIT/ML
     Route: 058
  7. CIPRO [Concomitant]
     Active Substance: CIPROFLOXACIN HYDROCHLORIDE
     Indication: GASTROINTESTINAL INFECTION
  8. SYNTHROID [Suspect]
     Active Substance: LEVOTHYROXINE SODIUM
     Indication: THYROID HORMONES DECREASED
     Route: 065
  9. CIPRO [Concomitant]
     Active Substance: CIPROFLOXACIN HYDROCHLORIDE
     Indication: LIVER DISORDER
     Route: 048
  10. XIFAXAN [Suspect]
     Active Substance: RIFAXIMIN
     Dosage: RE?STARTED
     Route: 048
  11. HUMALOG [Concomitant]
     Active Substance: INSULIN LISPRO
     Indication: PRODUCT USED FOR UNKNOWN INDICATION
     Dosage: 100 UNIT/ML
     Route: 058
     Dates: end: 2018
  12. SPIRONOLACTONE. [Concomitant]
     Active Substance: SPIRONOLACTONE
     Indication: PRODUCT USED FOR UNKNOWN INDICATION
     Route: 048
  13. POTASSIUM CHLORIDE. [Concomitant]
     Active Substance: POTASSIUM CHLORIDE
     Indication: PRODUCT USED FOR UNKNOWN INDICATION
     Route: 048
  14. DIGOXIN. [Concomitant]
     Active Substance: DIGOXIN
     Route: 048
  15. DEXILANT [Suspect]
     Active Substance: DEXLANSOPRAZOLE
     Indication: ABDOMINAL DISCOMFORT
     Route: 065
     Dates: start: 201801, end: 20180326
  16. XIFAXAN [Suspect]
     Active Substance: RIFAXIMIN
     Indication: HEPATIC CIRRHOSIS
     Route: 048
     Dates: start: 2005
  17. PREDNISONE. [Suspect]
     Active Substance: PREDNISONE
     Indication: DEAFNESS
     Route: 048
     Dates: start: 201011, end: 2010
  18. POTASSIUM [Concomitant]
     Active Substance: POTASSIUM
     Indication: PRODUCT USED FOR UNKNOWN INDICATION
     Route: 048
  19. FUROSEMIDE. [Concomitant]
     Active Substance: FUROSEMIDE
     Indication: PRODUCT USED FOR UNKNOWN INDICATION
     Route: 048

REACTIONS (26)
  - Faeces discoloured [Not Recovered/Not Resolved]
  - Nausea [Not Recovered/Not Resolved]
  - Weight decreased [Not Recovered/Not Resolved]
  - Stress [Not Recovered/Not Resolved]
  - Weight increased [Unknown]
  - Amnesia [Not Recovered/Not Resolved]
  - Chronic hepatic failure [Unknown]
  - Confusional state [Unknown]
  - Coma [Unknown]
  - Varices oesophageal [Recovered/Resolved]
  - Bipolar disorder [Unknown]
  - Blood pressure increased [Unknown]
  - Hallucination [Recovered/Resolved]
  - Therapy interrupted [Unknown]
  - Feeling abnormal [Recovered/Resolved]
  - Blood glucose fluctuation [Unknown]
  - Deafness [Not Recovered/Not Resolved]
  - Abdominal distension [Recovered/Resolved]
  - Malaise [Not Recovered/Not Resolved]
  - Diabetes mellitus [Not Recovered/Not Resolved]
  - Hepatic steatosis [Not Recovered/Not Resolved]
  - Eating disorder [Not Recovered/Not Resolved]
  - Alopecia [Recovering/Resolving]
  - Abdominal pain [Not Recovered/Not Resolved]
  - Faeces hard [Not Recovered/Not Resolved]
  - Drug ineffective [Unknown]

NARRATIVE: CASE EVENT DATE: 2010
